FAERS Safety Report 10206409 (Version 1)
Quarter: 2014Q2

REPORT INFORMATION
  Report Type: Report from Study
  Country: GB (occurrence: GB)
  Receive Date: 20140530
  Receipt Date: 20140530
  Transmission Date: 20141212
  Serious: Yes (Hospitalization)
  Sender: FDA-Public Use
  Company Number: GB-JNJFOC-20140511236

PATIENT
  Age: 73 Year
  Sex: Male
  Weight: 108 kg

DRUGS (10)
  1. USTEKINUMAB [Suspect]
     Indication: PSORIASIS
     Route: 058
     Dates: start: 20120508
  2. AMOXICILLIN [Concomitant]
     Route: 065
     Dates: start: 20121101, end: 20121115
  3. WARFARIN [Concomitant]
     Route: 065
     Dates: start: 19930101
  4. ALLOPURINOL [Concomitant]
     Route: 065
     Dates: start: 20100301
  5. BUMETANIDE [Concomitant]
     Route: 065
     Dates: start: 20020101
  6. BISOPROLOL [Concomitant]
     Route: 065
     Dates: start: 19930101
  7. SIMVASTATIN [Concomitant]
     Route: 065
     Dates: start: 19930101
  8. CANDESARTAN [Concomitant]
     Route: 065
     Dates: start: 19930101
  9. DIGOXIN [Concomitant]
     Route: 065
     Dates: start: 19930101
  10. METFORMIN [Concomitant]
     Route: 065
     Dates: start: 20120505

REACTIONS (1)
  - Gastrointestinal infection [Recovered/Resolved]
